FAERS Safety Report 4985908-0 (Version None)
Quarter: 2006Q2

REPORT INFORMATION
  Report Type: 
  Country: None (occurrence: None)
  Receive Date: 20060421
  Receipt Date: 20060412
  Transmission Date: 20061013
  Serious: Yes (Hospitalization, Other)
  Sender: FDA-Public Use
  Company Number: 200610511GDS

PATIENT
  Age: 63 Year
  Sex: Female

DRUGS (7)
  1. CIPRO [Suspect]
     Dates: end: 20000101
  2. LEVAQUIN [Suspect]
     Indication: CHRONIC OBSTRUCTIVE PULMONARY DISEASE
     Dosage: 500 MG, ONCE, ORAL
     Route: 048
     Dates: start: 20000907
  3. LASIX [Suspect]
     Indication: CARDIAC FAILURE CONGESTIVE
     Dosage: 80 MG, TOTAL DAILY, ORAL
     Route: 048
  4. ACCUPRIL [Concomitant]
  5. MICRO-K [Concomitant]
  6. PREDNISONE TAB [Concomitant]
  7. TYLENOL W/ CODEINE NO. 3 [Concomitant]

REACTIONS (4)
  - ABDOMINAL DISCOMFORT [None]
  - DEHYDRATION [None]
  - INADEQUATE DIET [None]
  - VOMITING [None]
